FAERS Safety Report 7525777-8 (Version None)
Quarter: 2011Q2

REPORT INFORMATION
  Report Type: 
  Country: None (occurrence: None)
  Receive Date: 20110606
  Receipt Date: 20110603
  Transmission Date: 20111010
  Serious: Yes (Death, Other)
  Sender: FDA-Public Use
  Company Number: PHHY2011AU48094

PATIENT
  Sex: Male

DRUGS (1)
  1. STALEVO 100 [Suspect]

REACTIONS (4)
  - DYSPHAGIA [None]
  - PNEUMONIA [None]
  - PARKINSON'S DISEASE [None]
  - ABASIA [None]
